FAERS Safety Report 10643343 (Version 1)
Quarter: 2014Q4

REPORT INFORMATION
  Report Type: Spontaneous
  Country: US (occurrence: None)
  Receive Date: 20141202
  Receipt Date: 20141202
  Transmission Date: 20150529
  Serious: No
  Sender: FDA-Public Use
  Company Number: 2013TUS000557

PATIENT
  Age: 55 Year
  Sex: Male

DRUGS (1)
  1. NESINA [Suspect]
     Active Substance: ALOGLIPTIN BENZOATE

REACTIONS (4)
  - Flushing [None]
  - Ocular discomfort [None]
  - Vision blurred [None]
  - Dyspepsia [None]
